FAERS Safety Report 5852849-6 (Version None)
Quarter: 2008Q3

REPORT INFORMATION
  Report Type: 
  Country: None (occurrence: None)
  Receive Date: 20080821
  Receipt Date: 20080820
  Transmission Date: 20090109
  Serious: Yes (Other)
  Sender: FDA-Public Use
  Company Number: DK-ASTRAZENECA-2008SE03908

PATIENT
  Age: 496 Month
  Sex: Male
  Weight: 79 kg

DRUGS (1)
  1. RHINOCORT [Suspect]
     Route: 055
     Dates: start: 20030101, end: 20080815

REACTIONS (1)
  - OPTIC NERVE NEOPLASM [None]
